FAERS Safety Report 25747552 (Version 2)
Quarter: 2025Q3

REPORT INFORMATION
  Report Type: Report from Study
  Country: US (occurrence: US)
  Receive Date: 20250901
  Receipt Date: 20250930
  Transmission Date: 20251021
  Serious: Yes (Hospitalization)
  Sender: ABBVIE
  Company Number: US-ABBVIE-6291319

PATIENT
  Sex: Female

DRUGS (1)
  1. SKYRIZI [Suspect]
     Active Substance: RISANKIZUMAB-RZAA
     Indication: Crohn^s disease
     Route: 058
     Dates: start: 20241021

REACTIONS (6)
  - Infectious mononucleosis [Recovered/Resolved]
  - Drug ineffective [Unknown]
  - Crohn^s disease [Recovering/Resolving]
  - Haematochezia [Recovering/Resolving]
  - Haemorrhoids [Unknown]
  - Liver function test increased [Recovering/Resolving]
